FAERS Safety Report 8950678 (Version 1)
Quarter: 2012Q4

REPORT INFORMATION
  Report Type: 
  Country: GB (occurrence: GB)
  Receive Date: 20121207
  Receipt Date: 20121207
  Transmission Date: 20130627
  Serious: Yes (Hospitalization)
  Sender: FDA-Public Use
  Company Number: GB-RANBAXY-2012R1-62724

PATIENT
  Age: 73 Year
  Sex: Female

DRUGS (1)
  1. NAPROXEN [Suspect]
     Indication: PAIN
     Dosage: UNK
     Route: 048
     Dates: end: 20121011

REACTIONS (1)
  - Epistaxis [Recovered/Resolved]
